FAERS Safety Report 8924367 (Version 1)
Quarter: 2012Q4

REPORT INFORMATION
  Report Type: 
  Country: US (occurrence: US)
  Receive Date: 20121126
  Receipt Date: 20121126
  Transmission Date: 20130627
  Serious: No
  Sender: FDA-Public Use
  Company Number: US-MYLANLABS-2012S1000637

PATIENT
  Age: 43 Year
  Sex: Male

DRUGS (9)
  1. CLONAZEPAM [Suspect]
     Indication: ANXIETY
     Route: 048
     Dates: start: 20111216, end: 20111217
  2. LEXAPRO [Concomitant]
     Indication: ANXIETY
     Dosage: Depression
     Route: 048
     Dates: start: 201108
  3. AMITRIPTYLINE [Concomitant]
     Indication: INSOMNIA
     Route: 048
     Dates: start: 2009
  4. MULTIVITAMIN [Concomitant]
  5. BORON [Concomitant]
  6. FISH OIL [Concomitant]
  7. IBUPROFEN [Concomitant]
  8. PROTEIN SUPPLEMENT [Concomitant]
  9. ZINC [Concomitant]

REACTIONS (4)
  - Drug ineffective [Recovered/Resolved]
  - Anxiety [Recovered/Resolved]
  - Muscle swelling [Recovered/Resolved]
  - Chromaturia [Recovered/Resolved]
